FAERS Safety Report 8614686 (Version 2)
Quarter: 2012Q4

REPORT INFORMATION
  Report Type: 
  Country: US (occurrence: US)
  Receive Date: 20120614
  Receipt Date: 20121018
  Transmission Date: 20130627
  Serious: Yes (Other)
  Sender: FDA-Public Use
  Company Number: US-ROCHE-1077636

PATIENT
  Sex: Male
  Weight: 86.26 kg

DRUGS (3)
  1. ACCUTANE [Suspect]
     Indication: ACNE
     Route: 065
     Dates: start: 1983
  2. ACCUTANE [Suspect]
     Route: 065
     Dates: start: 1984
  3. ACCUTANE [Suspect]
     Route: 065
     Dates: start: 1990

REACTIONS (3)
  - Colitis [Unknown]
  - Inflammatory bowel disease [Unknown]
  - Injury [Unknown]
